FAERS Safety Report 25578066 (Version 1)
Quarter: 2025Q3

REPORT INFORMATION
  Report Type: Spontaneous
  Country: US (occurrence: US)
  Receive Date: 20250718
  Receipt Date: 20250718
  Transmission Date: 20251020
  Serious: No
  Sender: PFIZER
  Company Number: US-PFIZER INC-202500102393

PATIENT
  Age: 64 Year
  Sex: Female

DRUGS (1)
  1. LITFULO [Suspect]
     Active Substance: RITLECITINIB TOSYLATE
     Indication: Androgenetic alopecia
     Dosage: 50 MG, DAILY

REACTIONS (4)
  - Acne [Unknown]
  - Photodermatosis [Unknown]
  - Off label use [Unknown]
  - Drug effective for unapproved indication [Unknown]
